FAERS Safety Report 18815415 (Version 1)
Quarter: 2021Q1

REPORT INFORMATION
  Report Type: Spontaneous
  Country: US (occurrence: US)
  Receive Date: 20210129
  Receipt Date: 20210129
  Transmission Date: 20210419
  Serious: Yes (Hospitalization)
  Sender: FDA-Public Use
  Company Number: None

PATIENT
  Sex: Female

DRUGS (6)
  1. DIGITEK [Concomitant]
     Active Substance: DIGOXIN
  2. SILDENAFIL 20MG TAB [Suspect]
     Active Substance: SILDENAFIL
     Indication: PULMONARY ARTERIAL HYPERTENSION
     Route: 048
     Dates: start: 20171129
  3. WIXELA INHUB [Concomitant]
     Active Substance: FLUTICASONE PROPIONATE\SALMETEROL XINAFOATE
  4. OPSUMIT [Concomitant]
     Active Substance: MACITENTAN
  5. BUMEX [Concomitant]
     Active Substance: BUMETANIDE
  6. SPIRONOLACT [Concomitant]
     Active Substance: SPIRONOLACTONE

REACTIONS (6)
  - Dyspnoea [None]
  - Therapy interrupted [None]
  - Asthenia [None]
  - Blood potassium decreased [None]
  - Palpitations [None]
  - Blood magnesium decreased [None]
